FAERS Safety Report 18228992 (Version 9)
Quarter: 2022Q1

REPORT INFORMATION
  Report Type: Spontaneous
  Country: US (occurrence: US)
  Receive Date: 20200903
  Receipt Date: 20220302
  Transmission Date: 20220424
  Serious: Yes (Other)
  Sender: FDA-Public Use
  Company Number: US-PFIZER INC-2016394158

PATIENT
  Age: 61 Year
  Sex: Female
  Weight: 35.83 kg

DRUGS (7)
  1. LYRICA [Suspect]
     Active Substance: PREGABALIN
     Indication: Fibromyalgia
     Dosage: 2 CAPSULES OF 150 MG
     Route: 048
  2. LYRICA [Suspect]
     Active Substance: PREGABALIN
     Indication: Neoplasm malignant
     Dosage: 1 CAPSULE AM AND 2 CAPSULES PM
     Route: 048
  3. METHIMAZOLE [Concomitant]
     Active Substance: METHIMAZOLE
     Dosage: 5 MG, 1X/DAY
     Route: 048
  4. BUSPIRONE HCL [Concomitant]
     Active Substance: BUSPIRONE HYDROCHLORIDE
     Dosage: 10 MG, 3X/DAY
     Route: 048
  5. AMITRIPTYLINE [Concomitant]
     Active Substance: AMITRIPTYLINE
     Dosage: 10 MG, 1X/DAY [AT BEDTIME]
     Route: 048
  6. GABAPENTIN [Concomitant]
     Active Substance: GABAPENTIN
     Dosage: 300 MG, AS NEEDED [300 MG 1 CAPSULE ORALLY 3 TIMES A DAY, 30 DAY (S) AS NEEDED]
     Route: 048
  7. SAVELLA [Concomitant]
     Active Substance: MILNACIPRAN HYDROCHLORIDE
     Dosage: 100 MG, 2X/DAY [2 TABLETS TWICE A DAY]
     Route: 048

REACTIONS (9)
  - Oropharyngeal squamous cell carcinoma [Unknown]
  - Drug dependence [Unknown]
  - Hyperhidrosis [Unknown]
  - Feeding disorder [Unknown]
  - Withdrawal syndrome [Unknown]
  - Hypersomnia [Not Recovered/Not Resolved]
  - Anger [Unknown]
  - Depression [Unknown]
  - Off label use [Unknown]

NARRATIVE: CASE EVENT DATE: 20211101
